FAERS Safety Report 8607989-5 (Version None)
Quarter: 2012Q3

REPORT INFORMATION
  Report Type: 
  Country: None (occurrence: None)
  Receive Date: 20120810
  Receipt Date: 20120810
  Transmission Date: 20120928
  Serious: Yes (Hospitalization)
  Sender: FDA-Public Use
  Company Number: None

PATIENT
  Age: 53 Year
  Sex: Female
  Weight: 72.5755 kg

DRUGS (3)
  1. IMMUNE GLOBULIN INTRAVENOUS (HUMAN) [Suspect]
  2. IMMUNE GLOBULIN INTRAVENOUS (HUMAN) [Suspect]
     Indication: IMMUNODEFICIENCY COMMON VARIABLE
     Dosage: 35GM -350ML- Q4-5WKS IV DRIP
     Route: 041
     Dates: start: 20120412, end: 20120412
  3. DEXTROSE IN WATER 5%/10ML [Concomitant]

REACTIONS (14)
  - DIZZINESS [None]
  - FEELING ABNORMAL [None]
  - TRANSIENT ISCHAEMIC ATTACK [None]
  - ABNORMAL BEHAVIOUR [None]
  - ASTHENIA [None]
  - AMNESIA [None]
  - CONFUSIONAL STATE [None]
  - PARAESTHESIA [None]
  - DYSARTHRIA [None]
  - CLUMSINESS [None]
  - STRESS [None]
  - VISION BLURRED [None]
  - APHASIA [None]
  - HYPOAESTHESIA [None]
